FAERS Safety Report 6983376-0 (Version None)
Quarter: 2010Q3

REPORT INFORMATION
  Report Type: 
  Country: None (occurrence: None)
  Receive Date: 20100914
  Receipt Date: 20100914
  Transmission Date: 20110219
  Serious: Yes (Hospitalization)
  Sender: FDA-Public Use
  Company Number: None

PATIENT
  Sex: Male
  Weight: 82 kg

DRUGS (1)
  1. ACYCLOVIR [Suspect]
     Indication: MENINGITIS HERPES
     Dosage: 800MG EVERY 12 HOURS IV
     Route: 042
     Dates: start: 20100714, end: 20100715

REACTIONS (1)
  - NEPHROPATHY TOXIC [None]
